FAERS Safety Report 19386367 (Version 1)
Quarter: 2021Q2

REPORT INFORMATION
  Report Type: Other
  Country: HU (occurrence: HU)
  Receive Date: 20210608
  Receipt Date: 20210608
  Transmission Date: 20210717
  Serious: Yes (Other)
  Sender: FDA-Public Use
  Company Number: HU-ROCHE-2842217

PATIENT
  Age: 16 Year
  Sex: Female

DRUGS (1)
  1. RIVOTRIL [Suspect]
     Active Substance: CLONAZEPAM
     Indication: PRODUCT USED FOR UNKNOWN INDICATION
     Route: 065

REACTIONS (5)
  - Mayer-Rokitansky-Kuster-Hauser syndrome [Unknown]
  - Amenorrhoea [Unknown]
  - Anxiety [Unknown]
  - Depression [Unknown]
  - Pituitary tumour benign [Unknown]
